FAERS Safety Report 24233452 (Version 1)
Quarter: 2024Q3

REPORT INFORMATION
  Report Type: Spontaneous
  Country: CA (occurrence: CA)
  Receive Date: 20240821
  Receipt Date: 20240821
  Transmission Date: 20241017
  Serious: Yes (Death, Life-Threatening, Hospitalization, Disabling, Other)
  Sender: BRISTOL MYERS SQUIBB
  Company Number: CA-CELGENE-CAN-20210203328

PATIENT
  Age: 72 Year
  Sex: Male

DRUGS (28)
  1. ABRAXANE [Suspect]
     Active Substance: PACLITAXEL
     Indication: Pancreatic carcinoma metastatic
     Dosage: FREQUENCY TEXT: NOT PROVIDED
     Route: 041
  2. DURVALUMAB [Concomitant]
     Active Substance: DURVALUMAB
     Indication: Pancreatic carcinoma metastatic
     Dosage: FREQUENCY TEXT: NOT PROVIDED
     Route: 042
  3. GEMCITABINE HYDROCHLORIDE [Concomitant]
     Active Substance: GEMCITABINE HYDROCHLORIDE
     Indication: Pancreatic carcinoma metastatic
     Dosage: FREQUENCY TEXT: NOT PROVIDED
     Route: 041
  4. TREMELIMUMAB [Concomitant]
     Active Substance: TREMELIMUMAB
     Indication: Pancreatic carcinoma metastatic
     Dosage: FREQUENCY TEXT: NOT PROVIDED
     Route: 042
  5. ACETAMINOPHEN [Concomitant]
     Active Substance: ACETAMINOPHEN
     Indication: Back pain
  6. ASPIRIN [Concomitant]
     Active Substance: ASPIRIN
     Indication: Anticoagulant therapy
     Dosage: FREQUENCY TEXT: NOT PROVIDED
  7. CIPROFLOXACIN [Concomitant]
     Active Substance: CIPROFLOXACIN
     Indication: Cough
     Dosage: FREQUENCY TEXT: NOT PROVIDED
  8. CLONAZEPAM [Concomitant]
     Active Substance: CLONAZEPAM
     Indication: Insomnia
     Dosage: FREQUENCY TEXT: NOT PROVIDED
     Route: 048
  9. CODEINE [Concomitant]
     Active Substance: CODEINE
     Indication: Cough
     Dosage: FREQUENCY TEXT: NOT PROVIDED
  10. ERGOCALCIFEROL [Concomitant]
     Active Substance: ERGOCALCIFEROL
     Indication: Supplementation therapy
     Dosage: FREQUENCY TEXT: NOT PROVIDED
  11. EZETIMIBE [Concomitant]
     Active Substance: EZETIMIBE
     Indication: Hyperlipidaemia
     Dosage: FREQUENCY TEXT: NOT PROVIDED
     Route: 048
  12. FILGRASTIM [Concomitant]
     Active Substance: FILGRASTIM
     Indication: Thrombocytopenia
     Dosage: FREQUENCY TEXT: NOT PROVIDED
  13. GLUCOSE OXIDASE [Concomitant]
     Active Substance: GLUCOSE OXIDASE
     Indication: Dry mouth
     Dosage: FREQUENCY TEXT: NOT PROVIDED
  14. NITROGLYCERIN [Concomitant]
     Active Substance: NITROGLYCERIN
     Indication: Angina pectoris
     Dosage: FREQUENCY TEXT: NOT PROVIDED
  15. HYDROCORTISONE [Concomitant]
     Active Substance: HYDROCORTISONE\HYDROCORTISONE ACETATE
     Indication: Rash
     Dosage: FREQUENCY TEXT: NOT PROVIDED
  16. HYDROMORPHONE HYDROCHLORIDE [Concomitant]
     Active Substance: HYDROMORPHONE HYDROCHLORIDE
     Indication: Back pain
     Dosage: FREQUENCY TEXT: NOT PROVIDED
  17. LEVOFLOXACIN [Concomitant]
     Active Substance: LEVOFLOXACIN
     Indication: Cough
     Dosage: FREQUENCY TEXT: NOT PROVIDED
  18. LOPERAMIDE HYDROCHLORIDE [Concomitant]
     Active Substance: LOPERAMIDE HYDROCHLORIDE
     Indication: Prophylaxis against diarrhoea
     Dosage: FREQUENCY TEXT: NOT PROVIDED
     Route: 048
  19. LORATADINE [Concomitant]
     Active Substance: LORATADINE
     Indication: Prophylaxis
     Dosage: FREQUENCY TEXT: NOT PROVIDED
  20. POLYETHYLENE GLYCOLS [Concomitant]
     Active Substance: POLYETHYLENE GLYCOLS
     Indication: Constipation
     Dosage: FREQUENCY TEXT: NOT PROVIDED
  21. METOCLOPRAMIDE [Concomitant]
     Active Substance: METOCLOPRAMIDE
     Indication: Prophylaxis of nausea and vomiting
     Dosage: FREQUENCY TEXT: NOT PROVIDED
  22. METOPROLOL [Concomitant]
     Active Substance: METOPROLOL
     Indication: Hypertension
     Dosage: FREQUENCY TEXT: NOT PROVIDED
  23. RANITIDINE [Concomitant]
     Active Substance: RANITIDINE
     Indication: Prophylaxis
     Dosage: FREQUENCY TEXT: NOT PROVIDED
  24. ROSUVASTATIN [Concomitant]
     Active Substance: ROSUVASTATIN\ROSUVASTATIN CALCIUM
     Indication: Hyperlipidaemia
     Dosage: FREQUENCY TEXT: NOT PROVIDED
  25. CIPROFLOXACIN HYDROCHLORIDE [Concomitant]
     Active Substance: CIPROFLOXACIN HYDROCHLORIDE
     Indication: Cough
     Dosage: FREQUENCY TEXT: NOT PROVIDED
  26. LEVOFLOXACIN HEMIHYDRATE [Concomitant]
     Active Substance: LEVOFLOXACIN
     Indication: Cough
     Dosage: FREQUENCY TEXT: NOT PROVIDED
  27. RANITIDINE HYDROCHLORIDE [Concomitant]
     Active Substance: RANITIDINE HYDROCHLORIDE
     Indication: Prophylaxis
     Dosage: FREQUENCY TEXT: NOT PROVIDED
  28. ROSUVASTATIN CALCIUM [Concomitant]
     Active Substance: ROSUVASTATIN CALCIUM
     Indication: Hyperlipidaemia
     Dosage: FREQUENCY TEXT: NOT PROVIDED

REACTIONS (2)
  - Pneumonia [Fatal]
  - Pneumonitis [Fatal]
